APPROVED DRUG PRODUCT: CEFTAROLINE FOSAMIL
Active Ingredient: CEFTAROLINE FOSAMIL
Strength: 600MG/VIAL
Dosage Form/Route: POWDER;INTRAVENOUS
Application: A208075 | Product #002 | TE Code: AP
Applicant: APOTEX INC
Approved: Sep 21, 2021 | RLD: No | RS: No | Type: RX